FAERS Safety Report 13550057 (Version 2)
Quarter: 2017Q2

REPORT INFORMATION
  Report Type: Spontaneous
  Country: US (occurrence: US)
  Receive Date: 20170516
  Receipt Date: 20170629
  Transmission Date: 20170830
  Serious: No
  Sender: FDA-Public Use
  Company Number: US-ASTRAZENECA-2017SE48970

PATIENT
  Age: 13259 Day
  Sex: Female

DRUGS (1)
  1. PULMICORT FLEXHALER [Suspect]
     Active Substance: BUDESONIDE
     Route: 055
     Dates: start: 20170503

REACTIONS (5)
  - Dyspnoea [Not Recovered/Not Resolved]
  - Exposure during pregnancy [Unknown]
  - Chest discomfort [Not Recovered/Not Resolved]
  - Device malfunction [Unknown]
  - Viral upper respiratory tract infection [Recovering/Resolving]

NARRATIVE: CASE EVENT DATE: 20170503
